FAERS Safety Report 4439218-0 (Version None)
Quarter: 2004Q3

REPORT INFORMATION
  Report Type: 
  Country: None (occurrence: None)
  Receive Date: 20040831
  Receipt Date: 20040816
  Transmission Date: 20050211
  Serious: Yes (Hospitalization)
  Sender: FDA-Public Use
  Company Number: 04P-163-0251393-00

PATIENT
  Age: 10 Year
  Sex: Female
  Weight: 33 kg

DRUGS (1)
  1. HUMIRA [Suspect]
     Indication: JUVENILE ARTHRITIS
     Dosage: 30 MG, 1 IN 3 WK, SUBCUTANEOUS
     Route: 058
     Dates: start: 20030507, end: 20040216

REACTIONS (4)
  - DEVICE FAILURE [None]
  - HYDROCEPHALUS [None]
  - VENTRICULOPERITONEAL SHUNT MALFUNCTION [None]
  - VIRAL INFECTION [None]
